FAERS Safety Report 7302388-0 (Version None)
Quarter: 2011Q1

REPORT INFORMATION
  Report Type: 
  Country: None (occurrence: None)
  Receive Date: 20110218
  Receipt Date: 20100729
  Transmission Date: 20110831
  Serious: No
  Sender: FDA-Public Use
  Company Number: US-ASTRAZENECA-2010SE35550

PATIENT
  Age: 40 Year
  Sex: Female

DRUGS (1)
  1. ACCOLATE [Suspect]
     Indication: ASTHMA
     Route: 048

REACTIONS (2)
  - MALAISE [None]
  - INCORRECT DOSE ADMINISTERED [None]
